FAERS Safety Report 7437379-2 (Version None)
Quarter: 2011Q2

REPORT INFORMATION
  Report Type: 
  Country: None (occurrence: None)
  Receive Date: 20110426
  Receipt Date: 20110414
  Transmission Date: 20111010
  Serious: Yes (Other)
  Sender: FDA-Public Use
  Company Number: PHHY2010US80820

PATIENT
  Sex: Female
  Weight: 57 kg

DRUGS (8)
  1. ASPIRIN [Concomitant]
     Dosage: 81 MG, UNK
     Route: 048
  2. IRON [Concomitant]
  3. PROTONIX [Concomitant]
     Dosage: 40 MG, UNK
  4. SIMVASTATIN [Concomitant]
     Dosage: 20 MG, UNK
  5. IMODIUM [Concomitant]
  6. ZOLOFT [Concomitant]
  7. GLEEVEC [Suspect]
     Indication: DESMOID TUMOUR
     Dosage: 600 MG DAILY
     Route: 048
     Dates: start: 20100104, end: 20110210
  8. ROBINUL FORTE [Concomitant]
     Dosage: 2 MG, TWICE DAILY

REACTIONS (8)
  - VOMITING [None]
  - NEUTROPENIA [None]
  - DYSPEPSIA [None]
  - MALAISE [None]
  - NAUSEA [None]
  - HALLUCINATION [None]
  - DRUG INEFFECTIVE [None]
  - NEOPLASM PROGRESSION [None]
